FAERS Safety Report 14689935 (Version 1)
Quarter: 2018Q1

REPORT INFORMATION
  Report Type: Spontaneous
  Country: US (occurrence: US)
  Receive Date: 20180327
  Receipt Date: 20180327
  Transmission Date: 20180509
  Serious: Yes (Disabling, Other)
  Sender: FDA-Public Use
  Company Number: None

PATIENT
  Age: 22 Year
  Sex: Female
  Weight: 60.3 kg

DRUGS (6)
  1. MONTELUKAST [Concomitant]
     Active Substance: MONTELUKAST SODIUM
  2. TOPIRIMATE [Concomitant]
     Active Substance: TOPIRAMATE
  3. LITHOTHYROXINE [Concomitant]
  4. LEVAQUIN [Suspect]
     Active Substance: LEVOFLOXACIN
     Indication: MASTITIS
     Route: 042
     Dates: start: 20010907, end: 20010911
  5. LEVOTHYROXINE. [Concomitant]
     Active Substance: LEVOTHYROXINE
  6. VARIOUS MUSCLE CREAMS [Concomitant]

REACTIONS (10)
  - Migraine [None]
  - Alopecia [None]
  - Visual impairment [None]
  - Dizziness [None]
  - Myalgia [None]
  - Headache [None]
  - Hypersensitivity [None]
  - Impaired work ability [None]
  - Malaise [None]
  - Blister [None]

NARRATIVE: CASE EVENT DATE: 20010911
